FAERS Safety Report 7910115-9 (Version None)
Quarter: 2011Q4

REPORT INFORMATION
  Report Type: 
  Country: None (occurrence: None)
  Receive Date: 20111111
  Receipt Date: 20111107
  Transmission Date: 20120403
  Serious: Yes (Hospitalization, Other)
  Sender: FDA-Public Use
  Company Number: CHPA2011US015583

PATIENT
  Age: 59 Year
  Sex: Male

DRUGS (3)
  1. PERDIEM OVERNIGHT RELIEF PILLS [Suspect]
     Indication: CONSTIPATION
     Dosage: 2 DF, QHS
     Route: 048
  2. RANITIDINE [Concomitant]
     Indication: DYSPEPSIA
     Dosage: UNK, PRN
     Route: 048
  3. FISH OIL [Concomitant]
     Dosage: UNK, UNK
     Route: 048

REACTIONS (3)
  - DIABETES MELLITUS [None]
  - MYOCARDIAL INFARCTION [None]
  - INCORRECT DRUG ADMINISTRATION DURATION [None]
